FAERS Safety Report 5421671-7 (Version None)
Quarter: 2007Q3

REPORT INFORMATION
  Report Type: 
  Country: None (occurrence: None)
  Receive Date: 20070821
  Receipt Date: 20070809
  Transmission Date: 20080115
  Serious: Yes (Other)
  Sender: FDA-Public Use
  Company Number: PT-PFIZER INC-2007059051

PATIENT
  Age: 42 Year
  Sex: Male

DRUGS (3)
  1. XALATAN [Suspect]
     Indication: INTRAOCULAR PRESSURE INCREASED
     Route: 047
  2. XALATAN [Suspect]
  3. ALL OTHER THERAPEUTIC PRODUCTS [Concomitant]
     Route: 047

REACTIONS (2)
  - MYOPIA [None]
  - VISION BLURRED [None]
